FAERS Safety Report 7191152-1 (Version None)
Quarter: 2010Q4

REPORT INFORMATION
  Report Type: 
  Country: None (occurrence: None)
  Receive Date: 20101223
  Receipt Date: 20101220
  Transmission Date: 20110411
  Serious: Yes (Hospitalization)
  Sender: FDA-Public Use
  Company Number: FR-PFIZER INC-2010175292

PATIENT
  Age: 37 Year
  Sex: Male

DRUGS (7)
  1. XANAX [Suspect]
     Indication: DEPRESSION
     Dosage: 1 DF, 3X/DAY
     Route: 048
     Dates: start: 20101110
  2. XANAX [Suspect]
     Indication: ANXIETY
  3. CITALOPRAM [Suspect]
     Indication: DEPRESSION
     Dosage: 20 MG, 1X/DAY
     Route: 048
     Dates: start: 20090101
  4. CITALOPRAM [Suspect]
     Indication: ANXIETY
  5. PRAZEPAM [Suspect]
     Indication: DEPRESSION
     Dosage: 10 MG, 3X/DAY
     Route: 048
     Dates: start: 20090101
  6. PRAZEPAM [Suspect]
     Indication: ANXIETY
  7. ZOLPIDEM [Suspect]
     Indication: INSOMNIA
     Dosage: 1 DF, 1X/DAY
     Route: 048
     Dates: start: 20090101

REACTIONS (1)
  - PANCREATITIS [None]
